FAERS Safety Report 7212799-X (Version None)
Quarter: 2011Q1

REPORT INFORMATION
  Report Type: 
  Country: None (occurrence: None)
  Receive Date: 20110106
  Receipt Date: 20110103
  Transmission Date: 20110831
  Serious: Yes (Hospitalization, Other)
  Sender: FDA-Public Use
  Company Number: US-ASTRAZENECA-2011SE00350

PATIENT
  Age: 908 Month
  Sex: Female
  Weight: 47.2 kg

DRUGS (15)
  1. SYMBICORT [Suspect]
     Dosage: BID, TOTAL DAILY DOSE: 320 MCG
     Route: 055
     Dates: start: 20100601
  2. NEXIUM [Concomitant]
     Route: 048
  3. XOPENEX [Concomitant]
     Dosage: EVERY 8-12 H
  4. DULCOLAX [Concomitant]
  5. VITAMIN B COMPLEX [Concomitant]
  6. SYMBICORT [Suspect]
     Indication: CHRONIC OBSTRUCTIVE PULMONARY DISEASE
     Dosage: BID, TOTAL DAILY DOSE: 320 MCG
     Route: 055
     Dates: start: 20100201, end: 20100401
  7. IPATROPIUM [Concomitant]
     Indication: CHRONIC OBSTRUCTIVE PULMONARY DISEASE
     Route: 045
  8. PREDNISONE [Concomitant]
     Dosage: 5 MG ALTERNATE WITH 10 MG DAILY
     Route: 048
  9. VIT D [Concomitant]
  10. SPIRIVA [Concomitant]
     Indication: CHRONIC OBSTRUCTIVE PULMONARY DISEASE
  11. ENABLEX [Concomitant]
  12. LORAZEPAM [Concomitant]
  13. GAS X [Concomitant]
  14. ACETAMINOPHEN [Concomitant]
     Indication: PAIN
     Dosage: AS NEEDED
  15. XOPENEX [Concomitant]
     Indication: CHRONIC OBSTRUCTIVE PULMONARY DISEASE
     Dosage: AS NEEDED

REACTIONS (2)
  - THROMBOSIS [None]
  - PNEUMONIA BACTERIAL [None]
